FAERS Safety Report 23187599 (Version 1)
Quarter: 2023Q4

REPORT INFORMATION
  Report Type: Spontaneous
  Country: US (occurrence: US)
  Receive Date: 20231115
  Receipt Date: 20231115
  Transmission Date: 20240110
  Serious: Yes (Death, Other)
  Sender: FDA-Public Use
  Company Number: US-BIOVITRUM-2023-US-018178

PATIENT
  Age: 5 Month
  Sex: Female

DRUGS (2)
  1. KINERET [Suspect]
     Active Substance: ANAKINRA
     Indication: Autoinflammatory disease
     Dosage: 50 MG DAILY
     Route: 058
  2. JAKAFI [Concomitant]
     Active Substance: RUXOLITINIB
     Indication: Product used for unknown indication
     Dosage: 5MG PO TWICE DAILY
     Route: 048

REACTIONS (2)
  - Death [Fatal]
  - Off label use [Recovered/Resolved]
